FAERS Safety Report 16699899 (Version 1)
Quarter: 2019Q3

REPORT INFORMATION
  Report Type: Spontaneous
  Country: JP (occurrence: JP)
  Receive Date: 20190813
  Receipt Date: 20190813
  Transmission Date: 20191004
  Serious: Yes (Hospitalization)
  Sender: FDA-Public Use
  Company Number: JP-ALLERGAN-1932847US

PATIENT
  Sex: Male

DRUGS (3)
  1. SILODOSIN - BP [Suspect]
     Active Substance: SILODOSIN
     Indication: PRODUCT USED FOR UNKNOWN INDICATION
     Dosage: UNK
     Route: 065
  2. DISTIGMINE BROMIDE [Concomitant]
     Active Substance: DISTIGMINE BROMIDE
  3. AVOLVE [Concomitant]
     Active Substance: DUTASTERIDE

REACTIONS (3)
  - Poriomania [Not Recovered/Not Resolved]
  - Restlessness [Not Recovered/Not Resolved]
  - Delirium [Not Recovered/Not Resolved]
